FAERS Safety Report 17135472 (Version 1)
Quarter: 2019Q4

REPORT INFORMATION
  Report Type: Spontaneous
  Country: FR (occurrence: FR)
  Receive Date: 20191210
  Receipt Date: 20191210
  Transmission Date: 20200122
  Serious: Yes (Other)
  Sender: FDA-Public Use
  Company Number: FR-JNJFOC-20191145222

PATIENT
  Age: 50 Year
  Sex: Female
  Weight: 84 kg

DRUGS (1)
  1. TRAMADOL/APAP [Suspect]
     Active Substance: ACETAMINOPHEN\TRAMADOL
     Indication: ROTATOR CUFF SYNDROME
     Dosage: 6 DF, 1/DAY
     Route: 048
     Dates: start: 20190913, end: 20190923

REACTIONS (7)
  - Somnolence [Recovering/Resolving]
  - Nightmare [Recovering/Resolving]
  - Cough [Recovering/Resolving]
  - Aphasia [Recovering/Resolving]
  - Decreased appetite [Recovering/Resolving]
  - Vertigo [Recovering/Resolving]
  - Diarrhoea [Recovering/Resolving]

NARRATIVE: CASE EVENT DATE: 20190924
